FAERS Safety Report 4402315-X (Version None)
Quarter: 2004Q3

REPORT INFORMATION
  Report Type: 
  Country: None (occurrence: None)
  Receive Date: 20040716
  Receipt Date: 20040707
  Transmission Date: 20050211
  Serious: Yes (Death, Hospitalization)
  Sender: FDA-Public Use
  Company Number: 104505ISR

PATIENT
  Age: 51 Year
  Sex: Male

DRUGS (5)
  1. DOXORUBICIN HCL [Suspect]
     Indication: DIFFUSE LARGE B-CELL LYMPHOMA
     Dosage: 50 MG/M2; INTRAVENOUS (NOS)
     Route: 042
     Dates: start: 20040201, end: 20040317
  2. VINCRISTINE SULFATE [Suspect]
     Indication: DIFFUSE LARGE B-CELL LYMPHOMA
     Dosage: 2 MILLIGRAM; INTRAVENOUS (NOS)
     Route: 042
     Dates: start: 20040201, end: 20040317
  3. CYCLOPHOSPHAMIDE [Suspect]
     Indication: DIFFUSE LARGE B-CELL LYMPHOMA
     Dosage: 750 MG/M2; INTRAVENOUS (NOS)
     Route: 042
     Dates: start: 20040201, end: 20040317
  4. MABTHERA (RITUXIMAB) [Suspect]
     Indication: DIFFUSE LARGE B-CELL LYMPHOMA
     Dosage: 375 MG/M2; INTRAVENOUS (NOS)
     Route: 042
     Dates: start: 20040201, end: 20040317
  5. PREDNISONE [Suspect]
     Indication: DIFFUSE LARGE B-CELL LYMPHOMA
     Dosage: 100 MILLIGRAM; ORAL
     Route: 048
     Dates: start: 20040201, end: 20040317

REACTIONS (10)
  - ASCITES [None]
  - COMA HEPATIC [None]
  - FEBRILE NEUTROPENIA [None]
  - HEPATIC FAILURE [None]
  - HEPATITIS B [None]
  - HEPATITIS CHOLESTATIC [None]
  - HEPATOSPLENOMEGALY [None]
  - HEPATOTOXICITY [None]
  - LIVER DISORDER [None]
  - PLATELET COUNT DECREASED [None]
